FAERS Safety Report 16664673 (Version 1)
Quarter: 2019Q3

REPORT INFORMATION
  Report Type: Spontaneous
  Country: ES (occurrence: ES)
  Receive Date: 20190803
  Receipt Date: 20190803
  Transmission Date: 20191004
  Serious: Yes (Other)
  Sender: FDA-Public Use
  Company Number: ES-AUROBINDO-AUR-APL-2019-044781

PATIENT

DRUGS (9)
  1. SOLINITRINA [Concomitant]
     Indication: ANGINA PECTORIS
     Dosage: 0.8 MILLIGRAM (AS NECESSARY, OCASIONAL, 30 TABLETS)
     Route: 060
     Dates: start: 20180820
  2. ENALAPRIL [Concomitant]
     Active Substance: ENALAPRIL
     Indication: ANGINA PECTORIS
     Dosage: 5 MILLIGRAM, DAILY
     Route: 048
     Dates: start: 20180820
  3. LIVAZO [Concomitant]
     Active Substance: PITAVASTATIN CALCIUM
     Indication: HYPERCHOLESTEROLAEMIA
     Dosage: 2 MILLIGRAM, DAILY (28 TABLETS)
     Route: 048
     Dates: start: 20190225
  4. FLIXOTIDE [Concomitant]
     Active Substance: FLUTICASONE PROPIONATE
     Indication: ASTHMA
     Dosage: 250 MICROGRAM, TWO TIMES A DAY
     Route: 055
     Dates: start: 20180820
  5. EUTIROX [Concomitant]
     Active Substance: LEVOTHYROXINE SODIUM
     Indication: HYPOTHYROIDISM
     Dosage: 50 MICROGRAM, DAILY
     Route: 048
     Dates: start: 20180820
  6. AAS [Concomitant]
     Active Substance: ASPIRIN
     Indication: ANGINA PECTORIS
     Dosage: 100 MILLIGRAM, DAILY
     Route: 048
     Dates: start: 20180820
  7. BISOPROLOL 5 MG FILM COATED TABLETS [Suspect]
     Active Substance: BISOPROLOL
     Indication: ANGINA PECTORIS
     Dosage: 5 MILLIGRAM, TWO TIMES A DAY
     Route: 048
     Dates: start: 20190520
  8. RANEXA [Suspect]
     Active Substance: RANOLAZINE
     Indication: ANGINA PECTORIS
     Dosage: 375 MILLIGRAM, TWO TIMES A DAY
     Route: 048
     Dates: start: 20190520, end: 20190522
  9. CETIRIZINE [Concomitant]
     Active Substance: CETIRIZINE HYDROCHLORIDE
     Indication: HYPERSENSITIVITY
     Dosage: 10 MILLIGRAM, DAILY
     Route: 048
     Dates: start: 20180820

REACTIONS (4)
  - Tachycardia [Recovered/Resolved with Sequelae]
  - Dizziness [Recovered/Resolved with Sequelae]
  - Disorientation [Recovered/Resolved with Sequelae]
  - Loss of consciousness [Recovered/Resolved with Sequelae]

NARRATIVE: CASE EVENT DATE: 20190520
